FAERS Safety Report 6903702-8 (Version None)
Quarter: 2010Q3

REPORT INFORMATION
  Report Type: 
  Country: None (occurrence: None)
  Receive Date: 20100803
  Receipt Date: 20081111
  Transmission Date: 20110219
  Serious: No
  Sender: FDA-Public Use
  Company Number: US-PFIZER INC-2008095557

PATIENT
  Sex: Male
  Weight: 95.4 kg

DRUGS (3)
  1. LYRICA [Suspect]
     Indication: MUSCULOSKELETAL CHEST PAIN
     Dates: start: 20081101
  2. NO PRODUCT FOUND [Suspect]
  3. ANTIHYPERTENSIVES [Concomitant]

REACTIONS (6)
  - CONSTIPATION [None]
  - DECREASED APPETITE [None]
  - DRY MOUTH [None]
  - FLATULENCE [None]
  - HYPOGLYCAEMIA [None]
  - NEURALGIA [None]
